FAERS Safety Report 10015160 (Version 2)
Quarter: 2014Q1

REPORT INFORMATION
  Report Type: Spontaneous
  Country: US (occurrence: US)
  Receive Date: 20140317
  Receipt Date: 20140317
  Transmission Date: 20141002
  Serious: No
  Sender: FDA-Public Use
  Company Number: US-GILEAD-2012-0057798

PATIENT
  Sex: Male

DRUGS (6)
  1. LETAIRIS [Suspect]
     Indication: PULMONARY HYPERTENSION
     Dosage: 10 MG, UNK
     Route: 048
     Dates: start: 20090105
  2. LETAIRIS [Suspect]
     Indication: TRANSPOSITION OF THE GREAT VESSELS
  3. LETAIRIS [Suspect]
     Indication: VENTRICULAR SEPTAL DEFECT
  4. LETAIRIS [Suspect]
     Indication: EISENMENGER^S SYNDROME
  5. LETAIRIS [Suspect]
     Indication: HETEROTAXIA
  6. DILTIAZEM [Concomitant]

REACTIONS (2)
  - Temperature intolerance [Unknown]
  - Unevaluable event [Unknown]
